FAERS Safety Report 19003687 (Version 2)
Quarter: 2021Q2

REPORT INFORMATION
  Report Type: Spontaneous
  Country: AU (occurrence: AU)
  Receive Date: 20210312
  Receipt Date: 20210402
  Transmission Date: 20210717
  Serious: Yes (Death, Other)
  Sender: FDA-Public Use
  Company Number: AU-AMGEN-AUSSP2021038741

PATIENT
  Age: 1 Year
  Sex: Female

DRUGS (2)
  1. BLINATUMOMAB [Suspect]
     Active Substance: BLINATUMOMAB
     Indication: B PRECURSOR TYPE ACUTE LEUKAEMIA
     Dosage: 15 MICROGRAM/SQ. METER, QD
     Route: 065
  2. INOTUZUMAB [Concomitant]
     Active Substance: INOTUZUMAB OZOGAMICIN

REACTIONS (2)
  - Acute lymphocytic leukaemia [Fatal]
  - Therapy non-responder [Unknown]
